FAERS Safety Report 16444692 (Version 1)
Quarter: 2019Q3

REPORT INFORMATION
  Report Type: Spontaneous
  Country: US (occurrence: US)
  Receive Date: 20190617
  Receipt Date: 20190617
  Transmission Date: 20191004
  Serious: Yes (Other)
  Sender: FDA-Public Use
  Company Number: None

PATIENT
  Age: 43 Year
  Sex: Female
  Weight: 85.5 kg

DRUGS (16)
  1. BOTOX [Suspect]
     Active Substance: ONABOTULINUMTOXINA
     Indication: MUSCLE SPASTICITY
     Dates: start: 20190123, end: 20190417
  2. PREMARIN [Concomitant]
     Active Substance: ESTROGENS, CONJUGATED
  3. EXCEDRIN MIGRAINE [Concomitant]
     Active Substance: ACETAMINOPHEN\ASPIRIN\CAFFEINE
  4. IBUPROFEN. [Concomitant]
     Active Substance: IBUPROFEN
  5. PROMETRIUM [Concomitant]
     Active Substance: PROGESTERONE
  6. ARMOUR THYROID [Concomitant]
     Active Substance: THYROID, PORCINE
  7. ESTRACE [Concomitant]
     Active Substance: ESTRADIOL
  8. DIAZEPAM. [Concomitant]
     Active Substance: DIAZEPAM
  9. MAGNESIUM [Concomitant]
     Active Substance: MAGNESIUM
  10. GABAPENTIN. [Concomitant]
     Active Substance: GABAPENTIN
  11. BACLAFIN [Concomitant]
  12. BOTOX [Suspect]
     Active Substance: ONABOTULINUMTOXINA
     Indication: MIGRAINE
     Dates: start: 20190123, end: 20190417
  13. ATENOLOL. [Concomitant]
     Active Substance: ATENOLOL
  14. DHEA [Concomitant]
     Active Substance: PRASTERONE
  15. ASHAWAGANDA [Concomitant]
  16. CBD OIL [Concomitant]
     Active Substance: CANNABIDIOL\HERBALS

REACTIONS (5)
  - Fibromyalgia [None]
  - Musculoskeletal stiffness [None]
  - Pain [None]
  - Back pain [None]
  - Hypokinesia [None]

NARRATIVE: CASE EVENT DATE: 20190123
